FAERS Safety Report 7025911 (Version 12)
Quarter: 2014Q4

REPORT INFORMATION
  Report Type: Report from Study
  Country: US (occurrence: US)
  Receive Date: 20090617
  Receipt Date: 20141015
  Transmission Date: 20150529
  Serious: Yes (Life-Threatening, Hospitalization, Other)
  Sender: FDA-Public Use
  Company Number: PHHO2009US07133

PATIENT
  Age: 62 Year
  Sex: Male
  Weight: 118 kg

DRUGS (10)
  1. TASIGNA [Suspect]
     Active Substance: NILOTINIB
     Indication: CHRONIC MYELOID LEUKAEMIA
     Dosage: 800 MG, QD
     Route: 048
     Dates: start: 20080820, end: 20080828
  2. TASIGNA [Suspect]
     Active Substance: NILOTINIB
     Dosage: 400 MG, QD
     Route: 048
     Dates: start: 20090902, end: 20110330
  3. LISINOPRIL. [Concomitant]
     Active Substance: LISINOPRIL
  4. GLYBURIDE. [Concomitant]
     Active Substance: GLYBURIDE
  5. TASIGNA [Suspect]
     Active Substance: NILOTINIB
     Dosage: NO TREATMENT
     Dates: start: 20080829, end: 20080911
  6. TASIGNA [Suspect]
     Active Substance: NILOTINIB
     Dosage: NO TREATMENT
     Dates: start: 20090530, end: 20090901
  7. ASPIRIN. [Concomitant]
     Active Substance: ASPIRIN
  8. TASIGNA [Suspect]
     Active Substance: NILOTINIB
     Dosage: 400 MG, QD
     Route: 048
     Dates: start: 20080912, end: 20090529
  9. DILTIAZEM [Concomitant]
     Active Substance: DILTIAZEM
  10. METFORMIN [Concomitant]
     Active Substance: METFORMIN HYDROCHLORIDE

REACTIONS (41)
  - Electrocardiogram PQ interval prolonged [Unknown]
  - Left ventricular hypertrophy [Unknown]
  - Concomitant disease progression [Recovered/Resolved]
  - Hypotension [Unknown]
  - Respiratory distress [Recovering/Resolving]
  - Pseudomonas infection [Recovered/Resolved]
  - Cough [Unknown]
  - Cardiac failure congestive [Recovering/Resolving]
  - Atrioventricular block first degree [Unknown]
  - Fluid overload [Unknown]
  - Enterococcal infection [Recovered/Resolved]
  - Aortic stenosis [Recovered/Resolved]
  - Pyrexia [Recovered/Resolved]
  - Sternal fracture [Recovered/Resolved]
  - Renal failure [Recovering/Resolving]
  - Atrial flutter [Unknown]
  - Sepsis [Recovered/Resolved]
  - Abdominal distension [Unknown]
  - Atelectasis [Unknown]
  - Hypoxia [Recovering/Resolving]
  - General physical health deterioration [Recovering/Resolving]
  - Dyspnoea exertional [Recovering/Resolving]
  - Atrial fibrillation [Unknown]
  - Pulmonary oedema [Recovering/Resolving]
  - Cardiac hypertrophy [Unknown]
  - Pharyngitis [Unknown]
  - Pulmonary congestion [Unknown]
  - Tricuspid valve incompetence [Unknown]
  - Aortic valve calcification [Recovered/Resolved]
  - Electrocardiogram QT prolonged [Unknown]
  - Pleural effusion [Unknown]
  - Wound infection [Recovering/Resolving]
  - Ileus [Unknown]
  - Ascites [Recovering/Resolving]
  - Urine output decreased [Recovering/Resolving]
  - Cardiomegaly [Not Recovered/Not Resolved]
  - Lung infiltration [Unknown]
  - Respiratory failure [Recovering/Resolving]
  - Dilatation atrial [Unknown]
  - Arteriosclerosis coronary artery [Recovering/Resolving]
  - Bloody discharge [Recovered/Resolved]

NARRATIVE: CASE EVENT DATE: 20090624
